FAERS Safety Report 15836139 (Version 1)
Quarter: 2019Q1

REPORT INFORMATION
  Report Type: Spontaneous
  Country: IT (occurrence: IT)
  Receive Date: 20190117
  Receipt Date: 20190117
  Transmission Date: 20190417
  Serious: Yes (Other)
  Sender: FDA-Public Use
  Company Number: IT-ASTRAZENECA-2019SE04408

PATIENT
  Age: 86 Year
  Sex: Male

DRUGS (8)
  1. BRILIQUE [Suspect]
     Active Substance: TICAGRELOR
     Indication: THROMBOSIS PROPHYLAXIS
     Route: 048
     Dates: start: 20180101, end: 20180109
  2. ACETYLSALICYLIC ACID [Suspect]
     Active Substance: ASPIRIN
     Indication: THROMBOSIS PROPHYLAXIS
     Route: 048
     Dates: start: 20180101, end: 20180109
  3. TORVAST [Concomitant]
     Active Substance: ATORVASTATIN
  4. AVODART [Concomitant]
     Active Substance: DUTASTERIDE
  5. LANSOX [Concomitant]
     Active Substance: LANSOPRAZOLE
  6. BISOPROLOL FUMARATE. [Concomitant]
     Active Substance: BISOPROLOL FUMARATE
  7. REMERON [Concomitant]
     Active Substance: MIRTAZAPINE
  8. NITRO-DUR [Concomitant]
     Active Substance: NITROGLYCERIN

REACTIONS (1)
  - Thrombocytopenia [Recovering/Resolving]

NARRATIVE: CASE EVENT DATE: 20180104
